FAERS Safety Report 15814024 (Version 1)
Quarter: 2019Q1

REPORT INFORMATION
  Report Type: Spontaneous
  Country: US (occurrence: US)
  Receive Date: 20190111
  Receipt Date: 20190111
  Transmission Date: 20190417
  Serious: No
  Sender: FDA-Public Use
  Company Number: US-JUBILANT CADISTA PHARMACEUTICALS-2018JUB00490

PATIENT
  Age: 83 Year
  Sex: Male
  Weight: 71.2 kg

DRUGS (6)
  1. TERAZOSIN [Suspect]
     Active Substance: TERAZOSIN\TERAZOSIN HYDROCHLORIDE
     Dosage: 5 MG, 1X/DAY
     Route: 048
     Dates: start: 20181013, end: 20181015
  2. CALCIUM [Concomitant]
     Active Substance: CALCIUM
  3. OMEGA 3^S [Concomitant]
  4. VITAMIN D [Concomitant]
     Active Substance: CHOLECALCIFEROL
  5. TERAZOSIN [Suspect]
     Active Substance: TERAZOSIN\TERAZOSIN HYDROCHLORIDE
     Indication: BENIGN PROSTATIC HYPERPLASIA
     Dosage: 5 MG, 1X/DAY
     Route: 048
     Dates: start: 2018, end: 2018
  6. MOBILITY PILLS [Concomitant]

REACTIONS (7)
  - Dizziness [Recovered/Resolved]
  - Bone pain [Recovered/Resolved]
  - Dysuria [Recovered/Resolved]
  - Drug ineffective [Recovered/Resolved]
  - Product substitution issue [Recovered/Resolved]
  - Blood pressure increased [Recovered/Resolved]
  - Renal disorder [Recovered/Resolved]

NARRATIVE: CASE EVENT DATE: 2018
